FAERS Safety Report 19513850 (Version 1)
Quarter: 2021Q3

REPORT INFORMATION
  Report Type: Spontaneous
  Country: ES (occurrence: ES)
  Receive Date: 20210709
  Receipt Date: 20210709
  Transmission Date: 20211014
  Serious: Yes (Hospitalization)
  Sender: FDA-Public Use
  Company Number: ES-MYLANLABS-2021M1039681

PATIENT
  Age: 44 Year
  Sex: Male
  Weight: 67.5 kg

DRUGS (2)
  1. PARACETAMOL [Suspect]
     Active Substance: ACETAMINOPHEN
     Indication: MIGRAINE
     Dosage: 1 GRAM, QW
     Route: 048
     Dates: start: 20200204, end: 20200905
  2. YURELAX [Suspect]
     Active Substance: CYCLOBENZAPRINE HYDROCHLORIDE
     Indication: PRODUCT USED FOR UNKNOWN INDICATION
     Dosage: 10 MILLIGRAM, BIWEEKLY
     Route: 048
     Dates: start: 202005, end: 20200905

REACTIONS (5)
  - Asthenia [Recovered/Resolved]
  - Pruritus [Recovered/Resolved]
  - Choluria [Recovered/Resolved]
  - Hepatitis cholestatic [Recovered/Resolved]
  - Jaundice [Recovered/Resolved]

NARRATIVE: CASE EVENT DATE: 20200905
